FAERS Safety Report 7134243-3 (Version None)
Quarter: 2010Q4

REPORT INFORMATION
  Report Type: 
  Country: None (occurrence: None)
  Receive Date: 20101203
  Receipt Date: 20101123
  Transmission Date: 20110411
  Serious: Yes (Hospitalization, Other)
  Sender: FDA-Public Use
  Company Number: US-NOVOPROD-318989

PATIENT
  Age: 56 Year
  Sex: Female

DRUGS (1)
  1. NOVOLIN R [Suspect]
     Indication: TYPE 1 DIABETES MELLITUS
     Dosage: 2 DOSES
     Dates: start: 19880101, end: 19880101

REACTIONS (2)
  - HYPERSENSITIVITY [None]
  - LOSS OF CONSCIOUSNESS [None]
